FAERS Safety Report 7364024-7 (Version None)
Quarter: 2011Q1

REPORT INFORMATION
  Report Type: 
  Country: None (occurrence: None)
  Receive Date: 20110321
  Receipt Date: 20110306
  Transmission Date: 20110831
  Serious: Yes (Hospitalization)
  Sender: FDA-Public Use
  Company Number: PHHY2011MX19101

PATIENT
  Sex: Male

DRUGS (1)
  1. CO-DIOVAN [Suspect]
     Indication: HYPERTENSION
     Dosage: 1 DF, DAILY
     Route: 048
     Dates: start: 20110120

REACTIONS (4)
  - CARDIAC DISORDER [None]
  - BLINDNESS [None]
  - CORNEAL DISORDER [None]
  - ANAEMIA [None]
